FAERS Safety Report 9547723 (Version 1)
Quarter: 2013Q2

REPORT INFORMATION
  Report Type: Spontaneous
  Country: US (occurrence: None)
  Receive Date: 20130606
  Receipt Date: 20130606
  Transmission Date: 20140414
  Serious: Yes (Other)
  Sender: FDA-Public Use
  Company Number: 163-POMAL-13034129

PATIENT
  Age: 86 Year
  Sex: Female

DRUGS (6)
  1. POMALYST [Suspect]
     Indication: PLASMA CELL MYELOMA
     Dosage: 1 IN 1 D
     Route: 048
     Dates: start: 20130304, end: 20130318
  2. DEXAMETHASONE [Concomitant]
  3. DAPSONE [Concomitant]
  4. ACYCLOVIR [Concomitant]
  5. ASA [Concomitant]
  6. PROCRIT [Concomitant]

REACTIONS (1)
  - White blood cell count decreased [None]
